FAERS Safety Report 18725590 (Version 2)
Quarter: 2025Q2

REPORT INFORMATION
  Report Type: Spontaneous
  Country: US (occurrence: US)
  Receive Date: 20210111
  Receipt Date: 20250630
  Transmission Date: 20250716
  Serious: Yes (Hospitalization, Other)
  Sender: AUROBINDO
  Company Number: US-MYLANLABS-2021M1000592

PATIENT
  Age: 70 Year
  Sex: Female

DRUGS (1)
  1. METHYLPHENIDATE HYDROCHLORIDE [Suspect]
     Active Substance: METHYLPHENIDATE HYDROCHLORIDE
     Indication: Mental impairment
     Route: 065

REACTIONS (4)
  - Antiphospholipid syndrome [Recovering/Resolving]
  - Acute kidney injury [Recovering/Resolving]
  - Acute pulmonary oedema [Recovering/Resolving]
  - Condition aggravated [Recovering/Resolving]
